FAERS Safety Report 20320113 (Version 1)
Quarter: 2022Q1

REPORT INFORMATION
  Report Type: Other
  Country: US (occurrence: None)
  Receive Date: 20220111
  Receipt Date: 20220111
  Transmission Date: 20220424
  Serious: No
  Sender: FDA-Public Use
  Company Number: US-ROCHE-2855090

PATIENT
  Age: 59 Year
  Sex: Female

DRUGS (7)
  1. RITUXIMAB [Suspect]
     Active Substance: RITUXIMAB
     Indication: Primary breast lymphoma
     Route: 065
     Dates: start: 2015
  2. RITUXIMAB [Suspect]
     Active Substance: RITUXIMAB
     Indication: Ocular lymphoma
     Dosage: 1 MG/0.1 ML
     Route: 050
  3. METHOTREXATE [Concomitant]
     Active Substance: METHOTREXATE
     Indication: Lymphoma
     Dosage: 400 UG/0.1 ML
     Route: 050
  4. CYCLOPHOSPHAMIDE [Concomitant]
     Active Substance: CYCLOPHOSPHAMIDE
     Indication: Primary breast lymphoma
     Dates: start: 2015
  5. DOXORUBICIN [Concomitant]
     Active Substance: DOXORUBICIN
     Indication: Primary breast lymphoma
     Dates: start: 2015
  6. VINCRISTINE [Concomitant]
     Active Substance: VINCRISTINE
     Indication: Primary breast lymphoma
     Dates: start: 2015
  7. PREDNISONE [Concomitant]
     Active Substance: PREDNISONE
     Indication: Primary breast lymphoma
     Dates: start: 2015

REACTIONS (2)
  - Off label use [Unknown]
  - No adverse event [Unknown]
